FAERS Safety Report 4880005-7 (Version None)
Quarter: 2006Q1

REPORT INFORMATION
  Report Type: 
  Country: None (occurrence: None)
  Receive Date: 20060111
  Receipt Date: 20050928
  Transmission Date: 20060701
  Serious: No
  Sender: FDA-Public Use
  Company Number: 2005S1000204

PATIENT
  Age: 60 Year
  Weight: 90.9 kg

DRUGS (2)
  1. CUBICIN [Suspect]
     Dosage: 8 MG/KG;Q24H;IV
     Route: 042
     Dates: start: 20050901, end: 20051007
  2. MEROPENEM [Concomitant]

REACTIONS (1)
  - SEMEN DISCOLOURATION [None]
